FAERS Safety Report 10182670 (Version 1)
Quarter: 2014Q2

REPORT INFORMATION
  Report Type: Spontaneous
  Country: US (occurrence: None)
  Receive Date: 20140519
  Receipt Date: 20140519
  Transmission Date: 20141212
  Serious: Yes (Hospitalization)
  Sender: FDA-Public Use
  Company Number: None

PATIENT
  Age: 74 Year
  Sex: Female
  Weight: 75 kg

DRUGS (1)
  1. NUVIGIL [Suspect]

REACTIONS (5)
  - Balance disorder [None]
  - Fall [None]
  - Head injury [None]
  - Arthralgia [None]
  - Gait disturbance [None]
